FAERS Safety Report 8536832-8 (Version None)
Quarter: 2012Q3

REPORT INFORMATION
  Report Type: 
  Country: None (occurrence: None)
  Receive Date: 20120725
  Receipt Date: 20120713
  Transmission Date: 20120928
  Serious: Yes (Hospitalization, Disabling)
  Sender: FDA-Public Use
  Company Number: US-ELI_LILLY_AND_COMPANY-US201207004620

PATIENT
  Sex: Female

DRUGS (4)
  1. BYETTA [Concomitant]
  2. HUMALOG [Suspect]
     Dosage: 24 U, BID
  3. HUMULIN N [Suspect]
     Indication: DIABETES MELLITUS
     Dosage: UNK
  4. HUMALOG [Suspect]
     Indication: DIABETES MELLITUS
     Dosage: 20 U, EACH MORNING

REACTIONS (2)
  - SURGERY [None]
  - ADVERSE EVENT [None]
